FAERS Safety Report 24892980 (Version 3)
Quarter: 2025Q1

REPORT INFORMATION
  Report Type: Spontaneous
  Country: CA (occurrence: CA)
  Receive Date: 20250128
  Receipt Date: 20250201
  Transmission Date: 20250409
  Serious: Yes (Hospitalization, Other)
  Sender: CELLTRION
  Company Number: CA-PFIZER INC-202500015054

PATIENT

DRUGS (7)
  1. INFLECTRA [Suspect]
     Active Substance: INFLIXIMAB-DYYB
     Indication: Colitis ulcerative
     Route: 042
     Dates: start: 20241224
  2. METHYLPHENIDATE [Concomitant]
     Active Substance: METHYLPHENIDATE
  3. CALCIUM\VITAMIN D [Concomitant]
     Active Substance: CALCIUM\VITAMIN D
  4. CITALOPRAM [Concomitant]
     Active Substance: CITALOPRAM
  5. DEXILANT [Concomitant]
     Active Substance: DEXLANSOPRAZOLE
  6. METHOTREXATE [Concomitant]
     Active Substance: METHOTREXATE
     Route: 048
  7. WINLEVI [Concomitant]
     Active Substance: CLASCOTERONE

REACTIONS (3)
  - Pancreatitis acute [Unknown]
  - Sphincter of Oddi dysfunction [Unknown]
  - Mental disorder [Unknown]
